FAERS Safety Report 8097017-5 (Version None)
Quarter: 2012Q1

REPORT INFORMATION
  Report Type: 
  Country: None (occurrence: None)
  Receive Date: 20120129
  Receipt Date: 20111205
  Transmission Date: 20120608
  Serious: No
  Sender: FDA-Public Use
  Company Number: US-ABBOTT-11P-163-0880833-00

PATIENT
  Sex: Female
  Weight: 59.02 kg

DRUGS (5)
  1. HUMIRA [Suspect]
     Indication: CROHN'S DISEASE
     Dosage: LOADING DOSE ONLY
     Dates: start: 20111201, end: 20111201
  2. ASACOL [Concomitant]
     Indication: CROHN'S DISEASE
  3. CLOBETASOL [Concomitant]
     Indication: PSORIASIS
     Route: 061
  4. PREDNISONE TAB [Concomitant]
     Indication: CROHN'S DISEASE
  5. PAROXETINE [Concomitant]
     Indication: ANXIETY

REACTIONS (4)
  - TREMOR [None]
  - FEELING ABNORMAL [None]
  - NIGHT SWEATS [None]
  - INJECTION SITE PAIN [None]
